FAERS Safety Report 5780946-2 (Version None)
Quarter: 2008Q2

REPORT INFORMATION
  Report Type: 
  Country: None (occurrence: None)
  Receive Date: 20080618
  Receipt Date: 20080605
  Transmission Date: 20081010
  Serious: Yes (Death)
  Sender: FDA-Public Use
  Company Number: 2008AL004715

PATIENT
  Age: 94 Year
  Sex: Male
  Weight: 68.0396 kg

DRUGS (4)
  1. DIGOXIN [Suspect]
  2. K-DUR [Concomitant]
  3. FUROSEMIDE [Concomitant]
  4. HALDOL [Concomitant]

REACTIONS (5)
  - ASPIRATION [None]
  - CARDIAC FAILURE CONGESTIVE [None]
  - CARDIOPULMONARY FAILURE [None]
  - COMA [None]
  - DEMENTIA [None]
